FAERS Safety Report 12665936 (Version 2)
Quarter: 2016Q4

REPORT INFORMATION
  Report Type: Spontaneous
  Country: US (occurrence: US)
  Receive Date: 20160818
  Receipt Date: 20161122
  Transmission Date: 20170207
  Serious: No
  Sender: FDA-Public Use
  Company Number: US-ALLERGAN-1663593US

PATIENT
  Age: 43 Year
  Sex: Female

DRUGS (2)
  1. KYBELLA [Suspect]
     Active Substance: DEOXYCHOLIC ACID
     Indication: FAT TISSUE INCREASED
     Dosage: 4 ML, SINGLE
     Route: 058
     Dates: start: 20160526, end: 20160526
  2. BOTOX COSMETIC [Suspect]
     Active Substance: ONABOTULINUMTOXINA
     Indication: SKIN WRINKLING
     Dosage: 10 UNITS, SINGLE
     Route: 030
     Dates: start: 20160526, end: 20160526

REACTIONS (4)
  - Injection site induration [Recovering/Resolving]
  - Drooling [Recovering/Resolving]
  - Off label use [Unknown]
  - Paralysis [Recovering/Resolving]

NARRATIVE: CASE EVENT DATE: 20160527
